FAERS Safety Report 9014459 (Version 1)
Quarter: 2013Q1

REPORT INFORMATION
  Report Type: Spontaneous
  Country: US (occurrence: US)
  Receive Date: 20130115
  Receipt Date: 20130115
  Transmission Date: 20140127
  Serious: Yes (Hospitalization)
  Sender: FDA-Public Use
  Company Number: US-GLAXOSMITHKLINE-A1007679A

PATIENT
  Age: 55 Year
  Sex: Male

DRUGS (6)
  1. ADVAIR [Suspect]
     Indication: CHRONIC OBSTRUCTIVE PULMONARY DISEASE
     Dosage: 1PUFF TWICE PER DAY
     Route: 055
     Dates: start: 201109
  2. VENTOLIN [Suspect]
     Indication: DYSPNOEA
     Dosage: 2PUFF SIX TIMES PER DAY
     Route: 055
     Dates: start: 201109
  3. SPIRIVA [Concomitant]
  4. COMBIVENT [Concomitant]
  5. MULTIVITAMIN [Concomitant]
  6. BLOOD PRESSURE MEDICATION [Concomitant]

REACTIONS (3)
  - Chronic obstructive pulmonary disease [Recovered/Resolved]
  - Dyspnoea [Recovered/Resolved]
  - Chest discomfort [Recovered/Resolved]
